FAERS Safety Report 9025569 (Version 1)
Quarter: 2013Q1

REPORT INFORMATION
  Report Type: Report from Study
  Country: CA (occurrence: CA)
  Receive Date: 20130122
  Receipt Date: 20130122
  Transmission Date: 20140127
  Serious: Yes (Other)
  Sender: FDA-Public Use
  Company Number: CA-ROCHE-1181396

PATIENT
  Sex: Female
  Weight: 85 kg

DRUGS (3)
  1. ACTEMRA [Suspect]
     Indication: RHEUMATOID ARTHRITIS
     Route: 042
     Dates: start: 20121120
  2. VITAMIN C [Concomitant]
  3. METFORMIN [Concomitant]
     Route: 065

REACTIONS (1)
  - Thrombophlebitis superficial [Not Recovered/Not Resolved]
